FAERS Safety Report 7395708-2 (Version None)
Quarter: 2011Q2

REPORT INFORMATION
  Report Type: 
  Country: None (occurrence: None)
  Receive Date: 20110405
  Receipt Date: 20110102
  Transmission Date: 20111010
  Serious: No
  Sender: FDA-Public Use
  Company Number: US-BAYER-2011-027543

PATIENT
  Sex: Female
  Weight: 132 kg

DRUGS (4)
  1. ALEVE (CAPLET) [Suspect]
     Dosage: CONSUMER PLACED TWO ALEVE ON HER TONGUE
     Route: 048
     Dates: start: 20101201
  2. ENFAMIL NATALINS RX [Concomitant]
     Indication: OESOPHAGEAL DISORDER
  3. PROPRANOLOL [Concomitant]
  4. ENFAMIL NATALINS RX [Concomitant]
     Indication: HYPERTENSION

REACTIONS (1)
  - BURNING SENSATION [None]
